FAERS Safety Report 10544952 (Version 1)
Quarter: 2014Q4

REPORT INFORMATION
  Report Type: Spontaneous
  Country: US (occurrence: US)
  Receive Date: 20141027
  Receipt Date: 20141027
  Transmission Date: 20150529
  Serious: No
  Sender: FDA-Public Use
  Company Number: US-BAYER-2014-156284

PATIENT
  Sex: Female

DRUGS (4)
  1. ANTACID [ALUMINIUM HYDROXIDE,DIMETICONE,MAGNESIUM HYDROXIDE] [Concomitant]
     Dosage: UNK UNK, UNK
  2. ALEVE [Suspect]
     Active Substance: NAPROXEN SODIUM
     Dosage: UNK UNK, UNK
     Route: 048
  3. PREDNISONE. [Concomitant]
     Active Substance: PREDNISONE
  4. ADVIL [Concomitant]
     Active Substance: IBUPROFEN

REACTIONS (1)
  - Gastric disorder [Unknown]
